FAERS Safety Report 11182811 (Version 1)
Quarter: 2015Q2

REPORT INFORMATION
  Report Type: Spontaneous
  Country: CH (occurrence: US)
  Receive Date: 20150611
  Receipt Date: 20150611
  Transmission Date: 20150821
  Serious: No
  Sender: FDA-Public Use
  Company Number: CH-BRISTOL-MYERS SQUIBB COMPANY-BMS-2015-038781

PATIENT
  Age: 16 Year
  Sex: Female

DRUGS (2)
  1. ESCITALOPRAM [Concomitant]
     Active Substance: ESCITALOPRAM OXALATE
     Indication: TOURETTE^S DISORDER
     Dosage: UNK
     Route: 065
     Dates: start: 2014
  2. ABILIFY [Suspect]
     Active Substance: ARIPIPRAZOLE
     Indication: TOURETTE^S DISORDER
     Dosage: 20 MG, UNK
     Route: 065

REACTIONS (3)
  - Dysarthria [Unknown]
  - Tardive dyskinesia [Unknown]
  - Off label use [Unknown]
